FAERS Safety Report 9136260 (Version 1)
Quarter: 2013Q1

REPORT INFORMATION
  Report Type: Spontaneous
  Country: US (occurrence: US)
  Receive Date: 20130304
  Receipt Date: 20130304
  Transmission Date: 20140127
  Serious: No
  Sender: FDA-Public Use
  Company Number: US-ABBOTT-12P-163-0983820-00

PATIENT
  Age: 52 Year
  Sex: 0
  Weight: 111.23 kg

DRUGS (5)
  1. ANDROGEL [Suspect]
     Indication: BLOOD TESTOSTERONE DECREASED
     Dosage: 4 PUMP ACTUATIONS PER DAY
     Dates: start: 201207, end: 20120909
  2. ANDROGEL [Suspect]
     Indication: BLOOD TESTOSTERONE DECREASED
     Dosage: 2 PUMP ACTUATIONS PER DAY
     Dates: start: 20120909
  3. WATER PILL [Concomitant]
     Indication: DIURETIC THERAPY
  4. THYROID THERAPY [Concomitant]
     Indication: PRODUCT USED FOR UNKNOWN INDICATION
  5. CHOLESTEROL PILL [Concomitant]
     Indication: BLOOD CHOLESTEROL INCREASED

REACTIONS (4)
  - Feeling abnormal [Not Recovered/Not Resolved]
  - Erythema [Recovered/Resolved]
  - Somnolence [Not Recovered/Not Resolved]
  - Joint swelling [Recovered/Resolved]
